FAERS Safety Report 5751293-X (Version None)
Quarter: 2008Q2

REPORT INFORMATION
  Report Type: 
  Country: None (occurrence: None)
  Receive Date: 20080528
  Receipt Date: 20080519
  Transmission Date: 20081010
  Serious: Yes (Life-Threatening, Hospitalization)
  Sender: FDA-Public Use
  Company Number: IT-PFIZER INC-2008026929

PATIENT
  Age: 45 Year
  Sex: Female

DRUGS (4)
  1. NIFEDIPINE [Suspect]
  2. ATENOLOL [Suspect]
  3. COUMADIN [Concomitant]
  4. BENZODIAZEPINE DERIVATIVES [Concomitant]

REACTIONS (2)
  - MULTI-ORGAN FAILURE [None]
  - OVERDOSE [None]
